FAERS Safety Report 18226338 (Version 1)
Quarter: 2020Q3

REPORT INFORMATION
  Report Type: Spontaneous
  Country: US (occurrence: US)
  Receive Date: 20200902
  Receipt Date: 20200902
  Transmission Date: 20201103
  Serious: No
  Sender: FDA-Public Use
  Company Number: None

PATIENT
  Age: 73 Year
  Sex: Male
  Weight: 96.75 kg

DRUGS (10)
  1. CAPECITABINE. [Suspect]
     Active Substance: CAPECITABINE
     Indication: SPLEEN DISORDER
     Route: 048
     Dates: start: 20200630
  2. CAPECITABINE. [Suspect]
     Active Substance: CAPECITABINE
     Indication: COLON CANCER
     Route: 048
     Dates: start: 20200630
  3. COLACE [Concomitant]
     Active Substance: DOCUSATE SODIUM
  4. AMLODIPINE [Concomitant]
     Active Substance: AMLODIPINE BESYLATE
  5. MIRAPEX [Concomitant]
     Active Substance: PRAMIPEXOLE DIHYDROCHLORIDE
  6. POTASSIUM CITRATE. [Concomitant]
     Active Substance: POTASSIUM CITRATE
  7. ASPIRIN. [Concomitant]
     Active Substance: ASPIRIN
  8. MULTIVITAMIN [Concomitant]
     Active Substance: VITAMINS
  9. FERROUS SULFATE 325MG [Concomitant]
     Active Substance: FERROUS SULFATE
  10. LACTULOSE. [Concomitant]
     Active Substance: LACTULOSE

REACTIONS (5)
  - Decreased appetite [None]
  - Fatigue [None]
  - Diarrhoea [None]
  - Cough [None]
  - Dyspnoea [None]

NARRATIVE: CASE EVENT DATE: 20200902
